FAERS Safety Report 15133931 (Version 2)
Quarter: 2018Q3

REPORT INFORMATION
  Report Type: Spontaneous
  Country: US (occurrence: US)
  Receive Date: 20180712
  Receipt Date: 20180726
  Transmission Date: 20181010
  Serious: No
  Sender: FDA-Public Use
  Company Number: US-SHIRE-US201825265

PATIENT
  Age: 54 Year
  Sex: Female

DRUGS (2)
  1. GATTEX [Suspect]
     Active Substance: TEDUGLUTIDE\WATER
     Indication: SHORT-BOWEL SYNDROME
     Dosage: 1.98 MG, 1X/DAY:QD
     Route: 065
     Dates: start: 20180419, end: 20180616
  2. GATTEX [Suspect]
     Active Substance: TEDUGLUTIDE\WATER
     Dosage: 1.98 MG, 1X/DAY:QD
     Route: 065
     Dates: start: 20170624

REACTIONS (5)
  - Inappropriate schedule of drug administration [Recovered/Resolved]
  - Weight decreased [Unknown]
  - Asthenia [Unknown]
  - Flatulence [Unknown]
  - Malabsorption [Unknown]

NARRATIVE: CASE EVENT DATE: 20180611
